FAERS Safety Report 8816269 (Version 1)
Quarter: 2012Q4

REPORT INFORMATION
  Report Type: Spontaneous
  Country: US (occurrence: None)
  Receive Date: 20120927
  Receipt Date: 20120927
  Transmission Date: 20130627
  Serious: Yes (Disabling)
  Sender: FDA-Public Use
  Company Number: None

PATIENT
  Age: 44 Year
  Sex: Male
  Weight: 90.72 kg

DRUGS (1)
  1. CIPRO [Suspect]
     Indication: SINUS INFECTION
     Dosage: 500mg 2/day po
     Route: 048
     Dates: start: 20120801, end: 20120808

REACTIONS (6)
  - Muscle fatigue [None]
  - Pain in extremity [None]
  - Pain in extremity [None]
  - Pain in extremity [None]
  - Musculoskeletal pain [None]
  - Arthralgia [None]
